FAERS Safety Report 10663952 (Version 3)
Quarter: 2022Q1

REPORT INFORMATION
  Report Type: Report from Study
  Country: US (occurrence: None)
  Receive Date: 20141219
  Receipt Date: 20220124
  Transmission Date: 20220423
  Serious: Yes (Hospitalization, Other)
  Sender: FDA-Public Use
  Company Number: US-ROCHE-1508668

PATIENT

DRUGS (9)
  1. VEMURAFENIB [Suspect]
     Active Substance: VEMURAFENIB
     Indication: Hairy cell leukaemia
     Route: 048
  2. SIMVASTATIN [Concomitant]
     Active Substance: SIMVASTATIN
  3. LACTULOSE [Concomitant]
     Active Substance: LACTULOSE
     Dosage: PRN
  4. FISH OIL [Concomitant]
     Active Substance: FISH OIL
     Dosage: 1200
  5. PREDNISONE [Concomitant]
     Active Substance: PREDNISONE
  6. LEVAQUIN [Concomitant]
     Active Substance: LEVOFLOXACIN
  7. RENAGEL [Concomitant]
     Active Substance: SEVELAMER HYDROCHLORIDE
     Dates: end: 20130219
  8. ALLOPURINOL [Concomitant]
     Active Substance: ALLOPURINOL
  9. ACYCLOVIR [Concomitant]
     Active Substance: ACYCLOVIR
     Route: 048

REACTIONS (2)
  - Febrile neutropenia [Recovered/Resolved]
  - Tumour lysis syndrome [Recovered/Resolved]

NARRATIVE: CASE EVENT DATE: 20130219
